FAERS Safety Report 6692884-1 (Version None)
Quarter: 2010Q2

REPORT INFORMATION
  Report Type: 
  Country: None (occurrence: None)
  Receive Date: 20100422
  Receipt Date: 20090417
  Transmission Date: 20101027
  Serious: No
  Sender: FDA-Public Use
  Company Number: US-BAUSCH-2009BL001717

PATIENT
  Age: 73 Year
  Sex: Female

DRUGS (2)
  1. TIMOLOL MALEATE [Suspect]
     Indication: GLAUCOMA
     Route: 047
     Dates: start: 20090415, end: 20090416
  2. INSULIN [Concomitant]

REACTIONS (2)
  - EYE IRRITATION [None]
  - HALO VISION [None]
